FAERS Safety Report 9627576 (Version 3)
Quarter: 2014Q2

REPORT INFORMATION
  Report Type: Spontaneous
  Country: US (occurrence: US)
  Receive Date: 20131016
  Receipt Date: 20140616
  Transmission Date: 20141212
  Serious: No
  Sender: FDA-Public Use
  Company Number: US-LUNDBECK-DKLU1090012

PATIENT
  Age: 1 Year
  Sex: Male

DRUGS (6)
  1. SABRIL     (TABLET) [Suspect]
     Indication: INFANTILE SPASMS
     Route: 048
     Dates: start: 20120508
  2. SABRIL     (TABLET) [Suspect]
     Route: 048
     Dates: start: 20130219
  3. SABRIL     (TABLET) [Suspect]
     Route: 048
     Dates: start: 20121220
  4. SABRIL     (TABLET) [Suspect]
     Route: 048
     Dates: start: 20121220
  5. DILANTIN [Concomitant]
     Indication: PRODUCT USED FOR UNKNOWN INDICATION
  6. ACTH [Concomitant]
     Indication: PRODUCT USED FOR UNKNOWN INDICATION

REACTIONS (4)
  - Crying [Unknown]
  - Irritability [Unknown]
  - Underdose [Recovered/Resolved]
  - Drug dose omission [Unknown]
